FAERS Safety Report 20995389 (Version 1)
Quarter: 2022Q2

REPORT INFORMATION
  Report Type: Spontaneous
  Country: IL (occurrence: IL)
  Receive Date: 20220622
  Receipt Date: 20220622
  Transmission Date: 20220721
  Serious: Yes (Other)
  Sender: FDA-Public Use
  Company Number: IL-002147023-NVSC2022IL127436

PATIENT

DRUGS (4)
  1. RUXOLITINIB [Suspect]
     Active Substance: RUXOLITINIB
     Indication: Polycythaemia vera
     Dosage: 10 MG, BID (STARTED ON 7 YEARS AGO)
     Route: 065
  2. LIDOCAINE [Concomitant]
     Active Substance: LIDOCAINE
     Indication: Local anaesthesia
     Dosage: 10 CC
     Route: 065
  3. MARCAIN ADRENALINE [Concomitant]
     Indication: Local anaesthesia
     Dosage: MARCAIN 0.5% WITH ADRENALINE 1:100000
     Route: 065
  4. FORMALDEHYDE [Concomitant]
     Active Substance: FORMALDEHYDE
     Indication: Product used for unknown indication
     Dosage: UNK
     Route: 065

REACTIONS (2)
  - Squamous cell carcinoma [Unknown]
  - Basal cell carcinoma [Unknown]
